FAERS Safety Report 20572586 (Version 1)
Quarter: 2022Q1

REPORT INFORMATION
  Report Type: Spontaneous
  Country: US (occurrence: US)
  Receive Date: 20220309
  Receipt Date: 20220309
  Transmission Date: 20220423
  Serious: Yes (Hospitalization)
  Sender: FDA-Public Use
  Company Number: US-PFIZER INC-202200346222

PATIENT
  Age: 58 Year
  Sex: Female

DRUGS (2)
  1. MORPHINE SULFATE [Suspect]
     Active Substance: MORPHINE SULFATE
     Indication: Pain
     Dosage: 15 MG, 2X/DAY
  2. OXYCODONE [Suspect]
     Active Substance: OXYCODONE
     Indication: Pain
     Dosage: 15 MG, EVERY 4 HOUR

REACTIONS (3)
  - Oesophageal motility disorder [Recovered/Resolved]
  - Oesophageal achalasia [Recovered/Resolved]
  - Constipation [Recovered/Resolved]
